FAERS Safety Report 5040541-X (Version None)
Quarter: 2006Q2

REPORT INFORMATION
  Report Type: 
  Country: None (occurrence: None)
  Receive Date: 20060630
  Receipt Date: 20050201
  Transmission Date: 20061013
  Serious: Yes (Death)
  Sender: FDA-Public Use
  Company Number: AU-ABBOTT-05P-008-0289195-00

PATIENT
  Sex: Male

DRUGS (19)
  1. RITONAVIR SOFT GELATIN CAPSULES [Suspect]
     Indication: HIV INFECTION
     Route: 048
     Dates: start: 20031127, end: 20040225
  2. ERAVIRENZ [Concomitant]
     Indication: DRUG USE FOR UNKNOWN INDICATION
     Dates: start: 20030716, end: 20030716
  3. LAMIVUDINE [Concomitant]
     Indication: DRUG USE FOR UNKNOWN INDICATION
     Dates: start: 20030716, end: 20040224
  4. ENFURVITIDE [Concomitant]
     Indication: DRUG USE FOR UNKNOWN INDICATION
     Dates: start: 20030716, end: 20031216
  5. BACTRIM [Concomitant]
     Indication: ANTIBIOTIC PROPHYLAXIS
     Dates: start: 19970701
  6. BETAMETHASONE DIPROPIONATE [Concomitant]
     Indication: EOSINOPHILIC PUSTULAR FOLLICULITIS
     Dates: start: 20030817
  7. DARBEPOETIN ALFA [Concomitant]
     Indication: ANAEMIA
     Dates: start: 20041216
  8. DIAZEPAM [Concomitant]
     Indication: ANXIETY
     Dates: start: 19970701
  9. ETHAMBUTOL [Concomitant]
     Indication: ANTIBIOTIC PROPHYLAXIS
     Dates: start: 20030816
  10. FUROSEMIDE [Concomitant]
     Indication: CONGESTIVE CARDIOMYOPATHY
     Dates: start: 20031001
  11. FUROSEMIDE [Concomitant]
     Indication: CARDIAC FAILURE CONGESTIVE
  12. LOPERAMIDE [Concomitant]
     Indication: DIARRHOEA
     Dates: start: 20030806
  13. METOCLOPRAMIDE HYDROCHLORIDE [Concomitant]
     Indication: NAUSEA
     Dates: start: 20030817
  14. PERINDOPRIL ERUMINE [Concomitant]
     Indication: CARDIAC FAILURE CONGESTIVE
     Dates: start: 20031002
  15. RIFABUTIN [Concomitant]
     Indication: ANTIBIOTIC PROPHYLAXIS
     Dates: start: 20030816
  16. TESTOSTERONE [Concomitant]
     Indication: LIBIDO DECREASED
     Route: 058
     Dates: start: 20000101
  17. TESTOSTERONE [Concomitant]
     Indication: ASTHENIA
  18. VALACYCLOVIR HCL [Concomitant]
     Indication: ANTIVIRAL PROPHYLAXIS
     Dates: start: 19970701
  19. TIPRANAVIR [Concomitant]
     Indication: HIV INFECTION
     Route: 048
     Dates: start: 20031127, end: 20040225

REACTIONS (2)
  - DEATH [None]
  - DRUG RESISTANCE [None]
